FAERS Safety Report 16186597 (Version 1)
Quarter: 2019Q2

REPORT INFORMATION
  Report Type: Spontaneous
  Country: FR (occurrence: FR)
  Receive Date: 20190411
  Receipt Date: 20190411
  Transmission Date: 20190711
  Serious: Yes (Hospitalization, Other)
  Sender: FDA-Public Use
  Company Number: FR-MYLANLABS-2019M1033397

PATIENT
  Age: 47 Year
  Sex: Female
  Weight: 46 kg

DRUGS (4)
  1. TERCIAN                            /00759302/ [Interacting]
     Active Substance: CYAMEMAZINE
     Indication: DEPRESSIVE SYMPTOM
     Route: 048
  2. PAROXETINE. [Suspect]
     Active Substance: PAROXETINE
     Indication: DEPRESSIVE SYMPTOM
     Dosage: 20 MILLIGRAM, QD
     Route: 048
  3. THERALENE [Interacting]
     Active Substance: TRIMEPRAZINE
     Indication: DEPRESSIVE SYMPTOM
     Dosage: 20 GTT DROPS, PRN  (AS NECESSARY)
     Route: 048
  4. SUBUTEX [Interacting]
     Active Substance: BUPRENORPHINE HYDROCHLORIDE
     Indication: PRODUCT USED FOR UNKNOWN INDICATION
     Dosage: 16 MILLIGRAM, QD
     Route: 048
     Dates: start: 2008

REACTIONS (4)
  - Constipation [Recovered/Resolved]
  - Faecaloma [Recovered/Resolved]
  - Drug dependence [Unknown]
  - Drug interaction [Unknown]

NARRATIVE: CASE EVENT DATE: 20180806
